FAERS Safety Report 24200807 (Version 1)
Quarter: 2024Q3

REPORT INFORMATION
  Report Type: Spontaneous
  Country: US (occurrence: None)
  Receive Date: 20240810
  Receipt Date: 20240810
  Transmission Date: 20241016
  Serious: Yes (unspecified)
  Sender: Public
  Company Number: None

PATIENT
  Age: 22 Year
  Sex: Female
  Weight: 51.75 kg

DRUGS (1)
  1. ISOTRETINOIN [Suspect]
     Active Substance: ISOTRETINOIN
     Indication: Acne

REACTIONS (11)
  - Therapy interrupted [None]
  - Diarrhoea [None]
  - Nausea [None]
  - Pyrexia [None]
  - Chills [None]
  - Gastrointestinal sounds abnormal [None]
  - Food intolerance [None]
  - Gastritis [None]
  - Erythema of eyelid [None]
  - Dry eye [None]
  - Meibomian gland dysfunction [None]

NARRATIVE: CASE EVENT DATE: 20240101
